FAERS Safety Report 7396213-X (Version None)
Quarter: 2011Q2

REPORT INFORMATION
  Report Type: 
  Country: None (occurrence: None)
  Receive Date: 20110406
  Receipt Date: 20110323
  Transmission Date: 20111010
  Serious: Yes (Hospitalization, Other)
  Sender: FDA-Public Use
  Company Number: US-CELGENEUS-163-21880-10112387

PATIENT
  Sex: Female
  Weight: 83.082 kg

DRUGS (27)
  1. BACTRIM [Concomitant]
     Route: 065
  2. ASPIRIN [Concomitant]
     Dosage: 81 MILLIGRAM
     Route: 065
  3. REVLIMID [Suspect]
     Indication: MULTIPLE MYELOMA
     Dosage: 25 MILLIGRAM
     Route: 048
     Dates: start: 20061016, end: 20070101
  4. NORVASC [Concomitant]
     Dosage: 5 MILLIGRAM
     Route: 065
  5. OS-CAL [Concomitant]
     Dosage: 500 MILLIGRAM
     Route: 065
  6. BLOOD TRANSFUSION [Concomitant]
     Route: 051
     Dates: start: 20061120, end: 20061120
  7. STEROIDS [Concomitant]
     Route: 065
  8. REVLIMID [Suspect]
     Dosage: 5 MILLIGRAM
     Route: 048
     Dates: start: 20070625, end: 20101216
  9. GLUCOTROL [Concomitant]
     Dosage: 10 MILLIGRAM
     Route: 048
  10. SLOW-MAG [Concomitant]
     Dosage: 400 MILLIGRAM
     Route: 065
  11. VERAPAMIL [Concomitant]
     Dosage: 180 MILLIGRAM
     Route: 065
  12. K-TAB [Concomitant]
     Dosage: 20 MILLIEQUIVALENTS
     Route: 065
  13. ZOMETA [Concomitant]
     Route: 065
  14. COUMADIN [Concomitant]
     Route: 065
  15. ARINEF [Concomitant]
     Route: 065
     Dates: start: 20061101
  16. REVLIMID [Suspect]
     Route: 048
     Dates: start: 20070205
  17. VITAMIN B6 [Concomitant]
     Dosage: 50 MILLIGRAM
     Route: 065
  18. KLONOPIN [Concomitant]
     Dosage: .5 MILLIGRAM
     Route: 065
  19. RENAX [Concomitant]
     Dosage: 2.5 MILLIGRAM
     Route: 065
  20. REVLIMID [Suspect]
     Dosage: 15 MILLIGRAM
     Route: 048
     Dates: start: 20070108, end: 20070101
  21. DIOVAN [Concomitant]
     Dosage: 80 MILLIGRAM
     Route: 065
  22. NEXIUM [Concomitant]
     Dosage: 40 MILLIGRAM
     Route: 065
  23. AVANDIA [Concomitant]
     Dosage: 4 MILLIGRAM
     Route: 065
  24. THEOPHYLLINE [Concomitant]
     Dosage: 200 MILLIGRAM
     Route: 065
  25. ADVAIR DISKUS 100/50 [Concomitant]
     Dosage: 250/50
     Route: 065
  26. PAXIL [Concomitant]
     Dosage: 10 MILLIGRAM
     Route: 065
  27. CRESTOR [Concomitant]
     Dosage: 10 MILLIGRAM
     Route: 065

REACTIONS (6)
  - PNEUMONIA VIRAL [None]
  - ASTHMA [None]
  - RED BLOOD CELL COUNT DECREASED [None]
  - ACUTE RESPIRATORY FAILURE [None]
  - PLATELET COUNT DECREASED [None]
  - WHITE BLOOD CELL COUNT DECREASED [None]
